FAERS Safety Report 7394993-0 (Version None)
Quarter: 2011Q2

REPORT INFORMATION
  Report Type: 
  Country: None (occurrence: None)
  Receive Date: 20110405
  Receipt Date: 20110325
  Transmission Date: 20111010
  Serious: Yes (Hospitalization)
  Sender: FDA-Public Use
  Company Number: AT-TEVA-273690ISR

PATIENT
  Sex: Male
  Weight: 80 kg

DRUGS (10)
  1. PRINZIDE [Concomitant]
     Indication: HYPERTENSION
     Route: 048
  2. DONEPEZIL HYDROCHLORIDE [Concomitant]
     Indication: DEMENTIA
     Route: 048
     Dates: start: 20101210
  3. LENALIDOMIDE (CC-5013) [Suspect]
     Route: 048
     Dates: start: 20101201, end: 20101210
  4. LEVOTHYROXINE SODIUM [Concomitant]
     Indication: AUTOIMMUNE THYROIDITIS
     Route: 048
  5. ALLOPURINOL [Concomitant]
     Indication: PROPHYLAXIS
     Route: 048
     Dates: start: 20090101, end: 20101226
  6. IBANDRONIC ACID [Concomitant]
  7. ACENOCOUMAROL [Concomitant]
     Indication: THROMBOSIS PROPHYLAXIS
     Route: 048
  8. TRIAZOLAM [Concomitant]
     Indication: PROPHYLAXIS
     Route: 048
     Dates: start: 20101210
  9. DEXAMETHASONE [Suspect]
     Indication: MULTIPLE MYELOMA
     Dates: start: 20091230
  10. DEXAMETHASONE [Suspect]
     Dates: start: 20101201, end: 20101210

REACTIONS (1)
  - ERYSIPELAS [None]
